FAERS Safety Report 19449019 (Version 3)
Quarter: 2021Q3

REPORT INFORMATION
  Report Type: Report from Study
  Country: US (occurrence: US)
  Receive Date: 20210622
  Receipt Date: 20210702
  Transmission Date: 20211014
  Serious: Yes (Hospitalization)
  Sender: FDA-Public Use
  Company Number: US-SEATTLE GENETICS-2020SGN05311

PATIENT
  Age: 40 Year
  Sex: Female

DRUGS (5)
  1. TUCATINIB [Suspect]
     Active Substance: TUCATINIB
     Indication: BREAST CANCER FEMALE
     Dosage: 300 MG, BID
     Route: 048
     Dates: start: 20201012, end: 20210617
  2. TUCATINIB [Suspect]
     Active Substance: TUCATINIB
     Dosage: UNK
     Route: 048
  3. CAPECITABINE. [Suspect]
     Active Substance: CAPECITABINE
     Indication: PRODUCT USED FOR UNKNOWN INDICATION
  4. TUCATINIB [Suspect]
     Active Substance: TUCATINIB
     Dosage: UNK
  5. TUCATINIB [Suspect]
     Active Substance: TUCATINIB
     Dosage: UNK

REACTIONS (12)
  - Tumour excision [Unknown]
  - Pruritus [Unknown]
  - Product dose omission issue [Unknown]
  - Brain neoplasm [Unknown]
  - Nail disorder [Unknown]
  - Fatigue [Unknown]
  - Disease progression [Unknown]
  - Oligomenorrhoea [Unknown]
  - Dry skin [Unknown]
  - Drug ineffective [Unknown]
  - Heavy menstrual bleeding [Unknown]
  - Skin discomfort [Unknown]

NARRATIVE: CASE EVENT DATE: 20210615
